FAERS Safety Report 6261131-7 (Version None)
Quarter: 2009Q3

REPORT INFORMATION
  Report Type: 
  Country: None (occurrence: None)
  Receive Date: 20090709
  Receipt Date: 20090202
  Transmission Date: 20100115
  Serious: No
  Sender: FDA-Public Use
  Company Number: US-KINGPHARMUSA00001-K200900104

PATIENT
  Sex: Female
  Weight: 68.481 kg

DRUGS (5)
  1. LEVOXYL [Suspect]
     Indication: HYPOTHYROIDISM
     Dosage: 100 MCG, QD
     Route: 048
     Dates: start: 20080801, end: 20081001
  2. LEVOXYL [Suspect]
     Dosage: 75 MCG, QD
     Route: 048
     Dates: start: 20081001, end: 20090101
  3. LEVOXYL [Suspect]
     Dosage: 88 MCG, QD
     Route: 048
     Dates: start: 20090101, end: 20090201
  4. FOSAMAX [Concomitant]
     Dosage: UNK
     Dates: end: 20090101
  5. VITAMINS                           /90003601/ [Concomitant]
     Dosage: UNK
     Dates: end: 20090101

REACTIONS (2)
  - HEADACHE [None]
  - NASAL CONGESTION [None]
